FAERS Safety Report 21043199 (Version 1)
Quarter: 2022Q3

REPORT INFORMATION
  Report Type: Other
  Country: None (occurrence: IN)
  Receive Date: 20220705
  Receipt Date: 20220705
  Transmission Date: 20221027
  Serious: Yes (Hospitalization, Other)
  Sender: FDA-Public Use
  Company Number: IN-Eywa Pharma Inc.-2130537

PATIENT
  Age: 36 Year
  Sex: Male

DRUGS (3)
  1. BACLOFEN [Suspect]
     Active Substance: BACLOFEN
     Indication: Alcoholism
     Route: 065
  2. CHLORDIAZEPOXIDE [Concomitant]
     Active Substance: CHLORDIAZEPOXIDE
     Route: 048
  3. THIAMINE [Concomitant]
     Active Substance: THIAMINE
     Route: 051

REACTIONS (1)
  - Suicidal ideation [Recovered/Resolved]
